FAERS Safety Report 24702577 (Version 1)
Quarter: 2024Q4

REPORT INFORMATION
  Report Type: Spontaneous
  Country: US (occurrence: None)
  Receive Date: 20241205
  Receipt Date: 20241205
  Transmission Date: 20250114
  Serious: Yes (Disabling)
  Sender: Public
  Company Number: None

PATIENT
  Age: 39 Year
  Sex: Female
  Weight: 63 kg

DRUGS (3)
  1. KYLEENA [Suspect]
     Active Substance: LEVONORGESTREL
     Indication: Contraception
     Dates: start: 20210804, end: 20241126
  2. VITAMIN D [Concomitant]
     Active Substance: VITAMIN D NOS
  3. Protein Powder Digest Gold [Concomitant]

REACTIONS (6)
  - Inflammation [None]
  - Dyspnoea [None]
  - Gastrointestinal disorder [None]
  - Affective disorder [None]
  - Anxiety [None]
  - Depression [None]

NARRATIVE: CASE EVENT DATE: 20241107
